FAERS Safety Report 20975788 (Version 1)
Quarter: 2022Q2

REPORT INFORMATION
  Report Type: Spontaneous
  Country: NL (occurrence: NL)
  Receive Date: 20220617
  Receipt Date: 20220617
  Transmission Date: 20220721
  Serious: Yes (Disabling, Other)
  Sender: FDA-Public Use
  Company Number: None

PATIENT
  Sex: Female
  Weight: 55 kg

DRUGS (1)
  1. ESCITALOPRAM [Suspect]
     Active Substance: ESCITALOPRAM OXALATE
     Indication: Product used for unknown indication
     Dosage: 5 MILLIGRAM, BID (2 X PER DAY 1 PIECE)
     Dates: start: 202202, end: 20220307

REACTIONS (3)
  - Panic reaction [Recovering/Resolving]
  - Hallucination, visual [Recovered/Resolved]
  - Affective disorder [Not Recovered/Not Resolved]
